FAERS Safety Report 5991931-X (Version None)
Quarter: 2008Q4

REPORT INFORMATION
  Report Type: 
  Country: None (occurrence: None)
  Receive Date: 20081211
  Receipt Date: 20080509
  Transmission Date: 20090506
  Serious: No
  Sender: FDA-Public Use
  Company Number: US-AMGEN-KDL278329

PATIENT
  Sex: Female

DRUGS (1)
  1. ENBREL [Suspect]
     Indication: RHEUMATOID ARTHRITIS
     Route: 058
     Dates: start: 20000101

REACTIONS (8)
  - COUGH [None]
  - MUSCULOSKELETAL PAIN [None]
  - NAUSEA [None]
  - NODULE ON EXTREMITY [None]
  - PAIN IN EXTREMITY [None]
  - PAIN IN JAW [None]
  - PYREXIA [None]
  - SECRETION DISCHARGE [None]
